FAERS Safety Report 6801221-0 (Version None)
Quarter: 2010Q2

REPORT INFORMATION
  Report Type: 
  Country: None (occurrence: None)
  Receive Date: 20100629
  Receipt Date: 20100615
  Transmission Date: 20101027
  Serious: Yes (Hospitalization, Other)
  Sender: FDA-Public Use
  Company Number: JP-MYLANLABS-2010S1010576

PATIENT
  Age: 84 Year
  Sex: Female
  Weight: 65 kg

DRUGS (11)
  1. AMLODIPINE [Suspect]
     Indication: HYPERTENSION
     Route: 065
     Dates: start: 20080701
  2. FUROSEMIDE [Suspect]
     Indication: HYPERTENSION
     Route: 065
     Dates: start: 20080701
  3. CANDESARTAN CILEXETIL [Suspect]
     Indication: HYPERTENSION
     Route: 065
     Dates: start: 20080701
  4. PRAVASTATIN [Suspect]
     Indication: HYPERLIPIDAEMIA
     Route: 065
     Dates: start: 20080701
  5. ROXATIDINE ACETATE HCL [Suspect]
     Route: 065
     Dates: start: 20080701
  6. HEPARIN [Suspect]
     Indication: DISSEMINATED INTRAVASCULAR COAGULATION
     Route: 065
     Dates: start: 20081009
  7. HEPARIN [Suspect]
     Dosage: 8000 IU/DAY CONTINUOUS ADMINISTRATION
     Route: 065
  8. METHYLPREDNISOLONE [Concomitant]
     Dosage: 1000 MG/DAY
     Route: 065
     Dates: start: 20081009
  9. PREDNISOLONE [Concomitant]
     Dosage: 50 MG/DAY
     Route: 048
  10. SIVELESTAT [Concomitant]
     Route: 065
     Dates: start: 20081009
  11. ENDOXAN [Concomitant]
     Dosage: 50 MG/DAY
     Route: 065
     Dates: start: 20081010

REACTIONS (3)
  - DISSEMINATED INTRAVASCULAR COAGULATION [None]
  - HEPARIN-INDUCED THROMBOCYTOPENIA [None]
  - PNEUMONIA [None]
